FAERS Safety Report 11895204 (Version 1)
Quarter: 2016Q1

REPORT INFORMATION
  Report Type: Spontaneous
  Country: US (occurrence: US)
  Receive Date: 20160107
  Receipt Date: 20160107
  Transmission Date: 20160526
  Serious: No
  Sender: FDA-Public Use
  Company Number: US-PFIZER INC-2016005417

PATIENT
  Age: 54 Year
  Sex: Female
  Weight: 62.6 kg

DRUGS (6)
  1. XELJANZ [Suspect]
     Active Substance: TOFACITINIB CITRATE
     Indication: RHEUMATOID ARTHRITIS
     Dosage: 5 MG, 2X/DAY
     Route: 048
     Dates: start: 201512
  2. FOLIC ACID. [Concomitant]
     Active Substance: FOLIC ACID
     Indication: ALOPECIA
     Dosage: 1 MG TABLET EVERY MORNING
  3. LISINOPRIL. [Concomitant]
     Active Substance: LISINOPRIL
     Indication: BLOOD PRESSURE ABNORMAL
     Dosage: 25 MG, 1X/DAY
  4. PREDNISONE. [Concomitant]
     Active Substance: PREDNISONE
     Indication: SYSTEMIC LUPUS ERYTHEMATOSUS
     Dosage: 1MG, TWO TABLETS IN THE MORNING
     Dates: start: 2015
  5. HYDROXYCHLOROQUINE [Concomitant]
     Active Substance: HYDROXYCHLOROQUINE
     Indication: SYSTEMIC LUPUS ERYTHEMATOSUS
     Dosage: 200MG TABLETS, TWO TABLETS ONCE DAILY
  6. PILOCARPINE. [Concomitant]
     Active Substance: PILOCARPINE
     Indication: DRY MOUTH
     Dosage: 5 MG, 3X/DAY

REACTIONS (3)
  - Pain [Not Recovered/Not Resolved]
  - Vomiting [Recovered/Resolved]
  - Ear infection [Recovering/Resolving]

NARRATIVE: CASE EVENT DATE: 20160103
